FAERS Safety Report 5551630-5 (Version None)
Quarter: 2007Q4

REPORT INFORMATION
  Report Type: 
  Country: None (occurrence: None)
  Receive Date: 20071129
  Receipt Date: 20061027
  Transmission Date: 20080405
  Serious: Yes (Other)
  Sender: FDA-Public Use
  Company Number: PHEH2006US12704

PATIENT
  Age: 43 Year
  Sex: Male

DRUGS (6)
  1. LAMISIL [Suspect]
     Indication: NAIL TINEA
     Dosage: 250 MG, QD, ORAL
     Route: 048
     Dates: start: 20060403, end: 20060530
  2. PROZAC [Concomitant]
  3. ZANAFLEX [Concomitant]
  4. NORVASC [Concomitant]
  5. SKELAXIN [Concomitant]
  6. IBUPROFEN [Concomitant]

REACTIONS (6)
  - DRUG ERUPTION [None]
  - FATIGUE [None]
  - INSOMNIA [None]
  - PRURITUS [None]
  - RASH [None]
  - SYSTEMIC LUPUS ERYTHEMATOSUS [None]
